FAERS Safety Report 16318460 (Version 9)
Quarter: 2022Q3

REPORT INFORMATION
  Report Type: Spontaneous
  Country: GB (occurrence: GB)
  Receive Date: 20190516
  Receipt Date: 20220707
  Transmission Date: 20221027
  Serious: Yes (Death, Other)
  Sender: FDA-Public Use
  Company Number: GB-ROCHE-597568

PATIENT
  Age: 64 Year
  Sex: Female

DRUGS (34)
  1. RITUXIMAB [Suspect]
     Active Substance: RITUXIMAB
     Indication: Diffuse large B-cell lymphoma
     Dosage: INDICATION ALSO REPORTED AS: RENAL DIFFUSE LARGE B CELL LYMPHOMA. STRENGTH: 500MG AND 2X 100MG, ON 0
     Route: 042
     Dates: start: 20071219, end: 20080518
  2. RITUXIMAB [Suspect]
     Active Substance: RITUXIMAB
     Indication: Non-Hodgkin^s lymphoma
     Dosage: UNK
     Route: 042
     Dates: start: 20080301, end: 20080301
  3. RITUXIMAB [Suspect]
     Active Substance: RITUXIMAB
     Indication: Diffuse large B-cell lymphoma
     Route: 065
     Dates: start: 20080301, end: 20080301
  4. RITUXIMAB [Suspect]
     Active Substance: RITUXIMAB
     Indication: Non-Hodgkin^s lymphoma
     Route: 065
     Dates: start: 20071219, end: 20180518
  5. RITUXIMAB [Suspect]
     Active Substance: RITUXIMAB
     Route: 065
     Dates: start: 200803, end: 20180518
  6. RITUXIMAB [Suspect]
     Active Substance: RITUXIMAB
     Route: 065
     Dates: start: 200803
  7. RITUXIMAB [Suspect]
     Active Substance: RITUXIMAB
     Route: 065
  8. PREDNISONE [Suspect]
     Active Substance: PREDNISONE
     Indication: Non-Hodgkin^s lymphoma
     Dosage: INDICATION ALSO REPORTED AS RENAL DIFFUSE LARGE B CELL LYMPHOMA?ON 01/MAR/20008, RECEIVED THERAPY WI
     Route: 065
     Dates: start: 20071219, end: 20080518
  9. PREDNISONE [Suspect]
     Active Substance: PREDNISONE
     Indication: Diffuse large B-cell lymphoma
     Dosage: UNK
     Route: 065
     Dates: start: 20080301, end: 20080301
  10. PREDNISONE [Suspect]
     Active Substance: PREDNISONE
     Indication: Inflammation
  11. METHOTREXATE SODIUM [Suspect]
     Active Substance: METHOTREXATE SODIUM
     Indication: Non-Hodgkin^s lymphoma
     Dosage: INDICATION ALSO REPORTED AS: RENAL DIFFUSE LARGE B CELL LYMPHOMA, 37.5 MILLIGRAM, QD (12.5 MG, 3X/DA
     Route: 039
     Dates: start: 20080314, end: 20080518
  12. METHOTREXATE SODIUM [Suspect]
     Active Substance: METHOTREXATE SODIUM
     Dosage: UNK
     Route: 039
     Dates: end: 20080312
  13. METHOTREXATE SODIUM [Suspect]
     Active Substance: METHOTREXATE SODIUM
     Dosage: UNK
     Route: 039
     Dates: end: 20080301
  14. METHOTREXATE SODIUM [Suspect]
     Active Substance: METHOTREXATE SODIUM
     Route: 039
     Dates: start: 20080314, end: 20080518
  15. DOXORUBICIN HYDROCHLORIDE [Suspect]
     Active Substance: DOXORUBICIN HYDROCHLORIDE
     Indication: Non-Hodgkin^s lymphoma
     Dosage: INDICATION ALSO REPORTED AS RENAL DIFFUSE LARGE B CELL LYMPHOMA?01/MAR/2008, RECEIVED THERAPY WITH D
     Route: 065
     Dates: start: 20071219, end: 20080518
  16. DOXORUBICIN HYDROCHLORIDE [Suspect]
     Active Substance: DOXORUBICIN HYDROCHLORIDE
     Indication: Diffuse large B-cell lymphoma
     Dosage: UNK
     Route: 065
     Dates: start: 20080301, end: 20080301
  17. VINCRISTINE SULFATE [Suspect]
     Active Substance: VINCRISTINE SULFATE
     Indication: Non-Hodgkin^s lymphoma
     Dosage: INDICATION ALSO REPORTED AS RENAL DIFFUSE LARGE B CELL LYMPHOMA?ON 01/MAR/2008, RECEIVED THERAPY WIT
     Route: 065
     Dates: start: 20071219, end: 20080518
  18. VINCRISTINE SULFATE [Suspect]
     Active Substance: VINCRISTINE SULFATE
     Indication: Diffuse large B-cell lymphoma
     Route: 065
     Dates: start: 20080301, end: 20080301
  19. VINCRISTINE SULFATE [Suspect]
     Active Substance: VINCRISTINE SULFATE
     Indication: Leukoencephalopathy
     Route: 065
  20. CYCLOPHOSPHAMIDE [Suspect]
     Active Substance: CYCLOPHOSPHAMIDE
     Indication: Non-Hodgkin^s lymphoma
     Dosage: INDICATION ALSO REPORTED AS RENAL DIFFUSE LARGE B CELL LYMPHOMA?ON 01/MAR/2008, RECEIVED THERAPY WIT
     Route: 065
     Dates: start: 20071219, end: 20080518
  21. CYCLOPHOSPHAMIDE [Suspect]
     Active Substance: CYCLOPHOSPHAMIDE
     Indication: Diffuse large B-cell lymphoma
     Dosage: UNK
     Route: 065
     Dates: start: 20080301, end: 20080301
  22. TRIMETHOPRIM [Concomitant]
     Active Substance: TRIMETHOPRIM
  23. SIMVASTATIN [Concomitant]
     Active Substance: SIMVASTATIN
     Dosage: 20 DOSAGE FORM, 20 DF, FREQ: UNK
  24. GANCICLOVIR SODIUM [Concomitant]
     Active Substance: GANCICLOVIR SODIUM
     Dosage: 150 DF, FREQ: ONCE DAILY
  25. AMLODIPINE [Concomitant]
     Active Substance: AMLODIPINE BESYLATE
  26. AMLODIPINE [Concomitant]
     Active Substance: AMLODIPINE BESYLATE
     Dosage: UNK
  27. FLUCONAZOLE [Concomitant]
     Active Substance: FLUCONAZOLE
     Dosage: 50 DF, FREQ: ONCE DAILY
  28. FLUCONAZOLE [Concomitant]
     Active Substance: FLUCONAZOLE
  29. LEUCOVORIN [Concomitant]
     Active Substance: LEUCOVORIN
  30. LEUCOVORIN [Concomitant]
     Active Substance: LEUCOVORIN
  31. LANSOPRAZOLE [Concomitant]
     Active Substance: LANSOPRAZOLE
     Dosage: 50 DF, FREQ: ONCE DAILY
  32. COTRIMOXAZOLE [Concomitant]
     Active Substance: SULFAMETHOXAZOLE\TRIMETHOPRIM
     Dosage: 1920 DF, BID (960 DF, 2X/DAY )
  33. LEUCOVORIN CALCIUM [Concomitant]
     Active Substance: LEUCOVORIN CALCIUM
     Dosage: 15 DF, FREQ: UNK
  34. SULFAMETHOXAZOLE [Concomitant]
     Active Substance: SULFAMETHOXAZOLE
     Dosage: UNK

REACTIONS (5)
  - Ataxia [Not Recovered/Not Resolved]
  - Progressive multifocal leukoencephalopathy [Fatal]
  - Amnesia [Not Recovered/Not Resolved]
  - Apraxia [Not Recovered/Not Resolved]
  - Leukoencephalopathy [Fatal]

NARRATIVE: CASE EVENT DATE: 20080101
